FAERS Safety Report 17410287 (Version 5)
Quarter: 2021Q1

REPORT INFORMATION
  Report Type: Spontaneous
  Country: US (occurrence: US)
  Receive Date: 20200212
  Receipt Date: 20210325
  Transmission Date: 20210419
  Serious: No
  Sender: FDA-Public Use
  Company Number: US-SA-2020SA012037

PATIENT
  Age: 61 Year
  Sex: Female

DRUGS (2)
  1. OXYMETAZOLINE HYDROCHLORIDE. [Suspect]
     Active Substance: OXYMETAZOLINE HYDROCHLORIDE
     Dosage: UNK
     Route: 065
     Dates: start: 201910
  2. NASACORT ALLERGY 24HR [Suspect]
     Active Substance: TRIAMCINOLONE ACETONIDE
     Indication: VASOMOTOR RHINITIS
     Dosage: UNK UNK, BID
     Route: 065
     Dates: start: 201910

REACTIONS (7)
  - Disturbance in attention [Unknown]
  - Anxiety [Unknown]
  - Muscle strain [Unknown]
  - Insomnia [Unknown]
  - Agitation [Unknown]
  - Muscle spasms [Unknown]
  - Unevaluable event [Unknown]

NARRATIVE: CASE EVENT DATE: 201911
